FAERS Safety Report 4914136-X (Version None)
Quarter: 2006Q1

REPORT INFORMATION
  Report Type: 
  Country: None (occurrence: None)
  Receive Date: 20060213
  Receipt Date: 20060201
  Transmission Date: 20060701
  Serious: Yes (Hospitalization)
  Sender: FDA-Public Use
  Company Number: TCI2006A00517

PATIENT
  Age: 80 Year
  Sex: Male

DRUGS (1)
  1. ACTOS [Suspect]
     Indication: DIABETES MELLITUS
     Dosage: 30 MG (30 MG, 1 D)  PER ORAL
     Route: 048
     Dates: start: 20051001, end: 20060101

REACTIONS (3)
  - DRUG INEFFECTIVE [None]
  - OEDEMA [None]
  - PLEURAL EFFUSION [None]
